FAERS Safety Report 16448827 (Version 2)
Quarter: 2020Q3

REPORT INFORMATION
  Report Type: Report from Study
  Country: GB (occurrence: GB)
  Receive Date: 20190619
  Receipt Date: 20190625
  Transmission Date: 20201105
  Serious: Yes (Hospitalization)
  Sender: FDA-Public Use
  Company Number: GB-ROCHE-2323441

PATIENT
  Age: 77 Year
  Sex: Male
  Weight: 69.5 kg

DRUGS (9)
  1. BENDAMUSTINE [Suspect]
     Active Substance: BENDAMUSTINE
     Indication: DIFFUSE LARGE B-CELL LYMPHOMA
     Dosage: ON DAYS 2 AND 3 OF CYCLE 1, THEN ON DAYS 1 AND 2 OF EACH SUBSEQUENT CYCLE FOR UP TO 6 CYCLES?DATE OF
     Route: 042
     Dates: start: 20190430
  2. RIVAROXABAN [Concomitant]
     Active Substance: RIVAROXABAN
     Dosage: PREVENT BLOOD CLOTS FROM FORMING DUE TO ATRIAL FIBRILLATION
     Route: 065
  3. LANSOPRAZOLE. [Concomitant]
     Active Substance: LANSOPRAZOLE
     Dosage: PROTON PUMP INHIBITORS WHICH BLOCK THE PRODUCTION OF ACID IN THE STOMACH
     Route: 065
  4. ATORVASTATIN [Concomitant]
     Active Substance: ATORVASTATIN
     Indication: BLOOD CHOLESTEROL INCREASED
     Dosage: TO REDUCE THE AMOUNT OF CHOLESTEROL MADE BY THE LIVER
     Route: 065
  5. RITUXIMAB. [Suspect]
     Active Substance: RITUXIMAB
     Indication: DIFFUSE LARGE B-CELL LYMPHOMA
     Dosage: DATE OF MOST RECENT DOSE OF RITUXIMAB PRIOR TO SAE ONSET: 20 MAY 2019 (660 MG)
     Route: 042
     Dates: start: 20190429
  6. LEVETIRACETAM. [Concomitant]
     Active Substance: LEVETIRACETAM
     Indication: SEIZURE
     Dosage: ANTICONVULSANT TO TREAT SEIZURE DISORDER
     Route: 065
  7. BISOPROLOL [Concomitant]
     Active Substance: BISOPROLOL
     Indication: HYPERTENSION
     Dosage: TO TREAT HIGH BLOOD PRESSURE
     Route: 065
  8. POLATUZUMAB VEDOTIN. [Suspect]
     Active Substance: POLATUZUMAB VEDOTIN
     Indication: DIFFUSE LARGE B-CELL LYMPHOMA
     Dosage: DATE OF MOST RECENT DOSE OF POLATUZUMAB VEDOTIN PRIOR TO SAE ONSET: 20 MAY 2019 (130 MG)
     Route: 042
     Dates: start: 20190430
  9. RAMIPRIL. [Concomitant]
     Active Substance: RAMIPRIL
     Dosage: ACE INHIBITOR TO TREAT HIGH BLOOD PRESSURE
     Route: 065

REACTIONS (1)
  - Sepsis [Recovered/Resolved]

NARRATIVE: CASE EVENT DATE: 20190520
